FAERS Safety Report 7028289-3 (Version None)
Quarter: 2010Q4

REPORT INFORMATION
  Report Type: 
  Country: None (occurrence: None)
  Receive Date: 20101005
  Receipt Date: 20100923
  Transmission Date: 20110411
  Serious: Yes (Hospitalization, Other)
  Sender: FDA-Public Use
  Company Number: JP-ROCHE-614115

PATIENT
  Sex: Female
  Weight: 53 kg

DRUGS (21)
  1. TOCILIZUMAB [Suspect]
     Indication: RHEUMATOID ARTHRITIS
     Route: 041
     Dates: start: 20081225, end: 20081225
  2. TOCILIZUMAB [Suspect]
     Route: 041
     Dates: start: 20090123, end: 20090123
  3. TOCILIZUMAB [Suspect]
     Route: 041
     Dates: start: 20090402, end: 20090402
  4. TOCILIZUMAB [Suspect]
     Route: 041
     Dates: start: 20090430, end: 20090430
  5. TOCILIZUMAB [Suspect]
     Route: 041
     Dates: start: 20090521, end: 20090521
  6. TOCILIZUMAB [Suspect]
     Route: 041
     Dates: start: 20090618, end: 20090618
  7. TOCILIZUMAB [Suspect]
     Route: 041
     Dates: start: 20090716
  8. ADRENAL CORTEX EXTRACT [Suspect]
     Indication: RHEUMATOID ARTHRITIS
     Dosage: DOSAGE IS UNCERTAIN.
     Route: 041
     Dates: start: 20090130, end: 20090201
  9. PREDONINE [Concomitant]
     Route: 048
     Dates: end: 20081009
  10. PREDONINE [Concomitant]
     Route: 048
     Dates: start: 20081010, end: 20081016
  11. PREDONINE [Concomitant]
     Route: 048
     Dates: start: 20081017, end: 20081027
  12. PREDONINE [Concomitant]
     Route: 048
     Dates: start: 20081028, end: 20081106
  13. PREDONINE [Concomitant]
     Route: 048
     Dates: start: 20081107, end: 20090108
  14. PREDONINE [Concomitant]
     Route: 048
     Dates: start: 20090109, end: 20090520
  15. PREDONINE [Concomitant]
     Route: 048
     Dates: start: 20090521
  16. ISCOTIN [Concomitant]
     Dosage: FORM: ORAL FORMULATION (NOT OTHERWISE SPECIFIED)
     Route: 048
     Dates: start: 20081217
  17. WARFARIN POTASSIUM [Concomitant]
     Dosage: DRUG REPORTED AS WARFARIN
     Route: 048
  18. TAKEPRON [Concomitant]
     Dosage: FORM: ORAL FORMULATION (NOT OTHERWISE SPECIFIED)
     Route: 048
  19. PROGRAF [Concomitant]
     Indication: RHEUMATOID ARTHRITIS
     Dates: start: 20080918, end: 20081025
  20. PROGRAF [Concomitant]
     Dates: start: 20081026, end: 20081224
  21. PROGRAF [Concomitant]
     Dates: start: 20090318

REACTIONS (4)
  - ANAEMIA [None]
  - ENDOCARDITIS [None]
  - PANCYTOPENIA [None]
  - SEPSIS [None]
